FAERS Safety Report 6973770-6 (Version None)
Quarter: 2010Q3

REPORT INFORMATION
  Report Type: 
  Country: None (occurrence: None)
  Receive Date: 20100909
  Receipt Date: 20100901
  Transmission Date: 20110219
  Serious: Yes (Hospitalization)
  Sender: FDA-Public Use
  Company Number: A0849756A

PATIENT
  Age: 66 Year
  Sex: Male
  Weight: 85.5 kg

DRUGS (3)
  1. AVANDIA [Suspect]
     Indication: DIABETES MELLITUS
     Dosage: 4MG PER DAY
     Route: 048
     Dates: end: 20070801
  2. LOPRESSOR [Concomitant]
  3. LASIX [Concomitant]

REACTIONS (13)
  - ACIDOSIS [None]
  - ALKALOSIS [None]
  - CARDIAC ARREST [None]
  - CARDIAC FAILURE CONGESTIVE [None]
  - HYPEROSMOLAR STATE [None]
  - HYPOKALAEMIA [None]
  - MYOCARDIAL INFARCTION [None]
  - PNEUMONIA [None]
  - RENAL FAILURE ACUTE [None]
  - RESPIRATORY ARREST [None]
  - RESPIRATORY FAILURE [None]
  - SEVERE ACUTE RESPIRATORY SYNDROME [None]
  - SHOCK [None]
